FAERS Safety Report 23059013 (Version 2)
Quarter: 2024Q1

REPORT INFORMATION
  Report Type: Spontaneous
  Country: GB (occurrence: GB)
  Receive Date: 20231012
  Receipt Date: 20240321
  Transmission Date: 20240409
  Serious: Yes (Other)
  Sender: FDA-Public Use
  Company Number: GB-ALLERGAN-2213056US

PATIENT
  Age: 67 Year
  Sex: Female

DRUGS (3)
  1. BRIMONIDINE [Suspect]
     Active Substance: BRIMONIDINE TARTRATE
     Indication: Open angle glaucoma
     Dosage: STRENGTH-0.2%
     Route: 061
  2. BIMATOPROST [Suspect]
     Active Substance: BIMATOPROST
     Indication: Open angle glaucoma
     Dosage: STRENGTH-0.03%
     Route: 061
  3. DORZOLAMIDE\TIMOLOL [Suspect]
     Active Substance: DORZOLAMIDE\TIMOLOL
     Indication: Open angle glaucoma
     Route: 061

REACTIONS (1)
  - Ocular surface disease [Recovering/Resolving]
